FAERS Safety Report 8135554-5 (Version None)
Quarter: 2012Q1

REPORT INFORMATION
  Report Type: 
  Country: None (occurrence: None)
  Receive Date: 20120214
  Receipt Date: 20120206
  Transmission Date: 20120608
  Serious: Yes (Hospitalization)
  Sender: FDA-Public Use
  Company Number: US-BAYER-2011-112456

PATIENT
  Age: 21 Year
  Sex: Female
  Weight: 97.506 kg

DRUGS (5)
  1. PEPCID [Concomitant]
     Dosage: 20 MG, BID
     Route: 048
     Dates: start: 20091013
  2. YAZ [Suspect]
     Indication: CONTRACEPTION
     Dosage: UNK
     Route: 048
     Dates: start: 20080103, end: 20091001
  3. TENUATE [Concomitant]
     Dosage: 25 MG, UNK
     Route: 048
  4. PHENTERMINE [Concomitant]
     Dosage: 37.5 MG, UNK
     Route: 048
  5. LOESTRIN 1.5/30 [Concomitant]
     Route: 048

REACTIONS (1)
  - CHOLECYSTITIS CHRONIC [None]
